FAERS Safety Report 6382160-9 (Version None)
Quarter: 2009Q3

REPORT INFORMATION
  Report Type: 
  Country: None (occurrence: None)
  Receive Date: 20090930
  Receipt Date: 20090925
  Transmission Date: 20100115
  Serious: Yes (Death, Hospitalization)
  Sender: FDA-Public Use
  Company Number: GB-BAYER-200911116BNE

PATIENT
  Age: 70 Year
  Sex: Female

DRUGS (11)
  1. SORAFENIB [Suspect]
     Indication: UNEVALUABLE EVENT
     Dosage: UNIT DOSE: 200 MG
     Route: 048
     Dates: start: 20060406, end: 20090505
  2. MEGESTROL ACETATE [Concomitant]
     Indication: FLUSHING
     Route: 048
     Dates: start: 20090407, end: 20090407
  3. LANSOPRAZOLE [Concomitant]
     Indication: DYSPEPSIA
     Route: 048
     Dates: start: 20090407, end: 20090407
  4. DIHYDROCODEINE BITARTRATE INJ [Concomitant]
     Indication: PAIN
     Route: 048
     Dates: start: 20090407, end: 20090407
  5. CETIRIZINE HCL [Concomitant]
     Indication: HYPERSENSITIVITY
     Route: 048
  6. CHLORHEXIDINE DIGLUCONATE [Concomitant]
     Indication: DENTAL DISORDER PROPHYLAXIS
     Route: 048
  7. CLOBETASONE BUTYRATE [Concomitant]
     Indication: ECZEMA
     Route: 061
  8. CO-DANTHRAMER [Concomitant]
     Indication: LAXATIVE SUPPORTIVE CARE
     Route: 048
  9. DICLOFENAC [Concomitant]
     Indication: PAIN
     Route: 048
  10. INDAPAMIDE [Concomitant]
     Indication: BLOOD PRESSURE MANAGEMENT
     Route: 048
  11. ANUSOL [Concomitant]
     Indication: ANORECTAL DISCOMFORT

REACTIONS (6)
  - CHOLELITHIASIS [None]
  - CONFUSIONAL STATE [None]
  - DEHYDRATION [None]
  - HYPERCALCAEMIA [None]
  - PANCREATITIS [None]
  - SPINAL CORD COMPRESSION [None]
